FAERS Safety Report 14015381 (Version 2)
Quarter: 2018Q1

REPORT INFORMATION
  Report Type: Spontaneous
  Country: US (occurrence: US)
  Receive Date: 20170927
  Receipt Date: 20180119
  Transmission Date: 20180508
  Serious: No
  Sender: FDA-Public Use
  Company Number: US-LUNDBECK-DKLU2037272

PATIENT
  Age: 90 Year
  Sex: Male

DRUGS (5)
  1. NORTHERA [Suspect]
     Active Substance: DROXIDOPA
     Dosage: AM
     Route: 065
     Dates: start: 201709
  2. NORTHERA [Suspect]
     Active Substance: DROXIDOPA
     Dosage: 3 HOURS BEFORE BEDTIME
     Route: 065
     Dates: start: 201709
  3. NORTHERA [Suspect]
     Active Substance: DROXIDOPA
     Dosage: MID DAY
     Route: 065
     Dates: start: 201709
  4. NORTHERA [Suspect]
     Active Substance: DROXIDOPA
     Dosage: TITRATION SCHEDULE C
     Route: 065
     Dates: start: 20170905
  5. NORTHERA [Suspect]
     Active Substance: DROXIDOPA
     Indication: PRODUCT USED FOR UNKNOWN INDICATION
     Dosage: SCHEDULE B; TITRATING
     Route: 065

REACTIONS (1)
  - Dizziness [Unknown]

NARRATIVE: CASE EVENT DATE: 201709
